FAERS Safety Report 7746650-6 (Version None)
Quarter: 2011Q3

REPORT INFORMATION
  Report Type: 
  Country: None (occurrence: None)
  Receive Date: 20110913
  Receipt Date: 20110906
  Transmission Date: 20111222
  Serious: Yes (Death, Hospitalization, Other)
  Sender: FDA-Public Use
  Company Number: DE-ABBOTT-11P-062-0847409-00

PATIENT
  Sex: Male

DRUGS (18)
  1. CIPROFLOXACIN [Concomitant]
     Indication: PRODUCT USED FOR UNKNOWN INDICATION
  2. HEPARIN [Concomitant]
     Indication: PRODUCT USED FOR UNKNOWN INDICATION
  3. DOPAMINE HYDROCHLORIDE [Concomitant]
     Indication: PRODUCT USED FOR UNKNOWN INDICATION
  4. HUMIRA [Suspect]
     Indication: RHEUMATOID ARTHRITIS
     Dates: start: 20081101, end: 20100917
  5. ACTIVASE [Concomitant]
     Indication: PRODUCT USED FOR UNKNOWN INDICATION
  6. NABIC [Concomitant]
     Indication: PRODUCT USED FOR UNKNOWN INDICATION
  7. MORPHIUM [Concomitant]
     Indication: PRODUCT USED FOR UNKNOWN INDICATION
  8. HEPARIN [Concomitant]
     Dosage: 5000IE
  9. SODIUM CHLORIDE 0.9% [Concomitant]
     Indication: PRODUCT USED FOR UNKNOWN INDICATION
     Dosage: 1000ML/24H
  10. DEXTROSE 20% [Concomitant]
     Indication: PRODUCT USED FOR UNKNOWN INDICATION
  11. ATROPIN 0.5 [Concomitant]
     Indication: PRODUCT USED FOR UNKNOWN INDICATION
  12. SUPRARENIN [Concomitant]
     Indication: PRODUCT USED FOR UNKNOWN INDICATION
  13. NOREPINEPHRINE BITARTRATE [Concomitant]
     Indication: PRODUCT USED FOR UNKNOWN INDICATION
  14. PREDNISOLONE [Concomitant]
     Indication: PRODUCT USED FOR UNKNOWN INDICATION
     Dosage: OPD
  15. SASP [Concomitant]
     Indication: PRODUCT USED FOR UNKNOWN INDICATION
     Dates: start: 19991201, end: 20100917
  16. SODIUM CHLORIDE 0.9% [Concomitant]
     Dosage: 1500ML/24H
  17. ASPISOL [Concomitant]
     Indication: PRODUCT USED FOR UNKNOWN INDICATION
  18. METHOTREXATE [Concomitant]
     Indication: PRODUCT USED FOR UNKNOWN INDICATION
     Dates: start: 20060412, end: 20100917

REACTIONS (4)
  - MULTI-ORGAN FAILURE [None]
  - SEPSIS [None]
  - PULMONARY EMBOLISM [None]
  - RHABDOMYOLYSIS [None]
